FAERS Safety Report 5064738-8 (Version None)
Quarter: 2006Q3

REPORT INFORMATION
  Report Type: 
  Country: None (occurrence: None)
  Receive Date: 20060728
  Receipt Date: 20060109
  Transmission Date: 20061208
  Serious: Yes (Death, Hospitalization)
  Sender: FDA-Public Use
  Company Number: TH-SANOFI-SYNTHELABO-F01200600048

PATIENT
  Sex: Female

DRUGS (4)
  1. AVASTIN [Suspect]
     Indication: COLON CANCER
     Dosage: Q3W
     Route: 042
  2. CAPECITABINE [Suspect]
     Indication: COLON CANCER
     Dosage: DOSED BID FOR 14 DAYS FOLLOWED BY A WEEK OF REST
     Route: 048
  3. OXALIPLATIN [Suspect]
     Indication: COLON CANCER
     Route: 042
  4. ENALAPRIL MALEATE [Concomitant]
     Dates: start: 20030101

REACTIONS (13)
  - ACUTE PRERENAL FAILURE [None]
  - BACTERIAL CULTURE POSITIVE [None]
  - BRONCHOSPASM [None]
  - CARDIAC ARREST [None]
  - CULTURE STOOL POSITIVE [None]
  - CYST [None]
  - DIARRHOEA [None]
  - FEBRILE NEUTROPENIA [None]
  - HAEMATOCRIT DECREASED [None]
  - HAEMOGLOBIN DECREASED [None]
  - LYMPHOCYTE PERCENTAGE INCREASED [None]
  - PLATELET COUNT DECREASED [None]
  - RENAL FAILURE [None]
